FAERS Safety Report 25726039 (Version 1)
Quarter: 2025Q3

REPORT INFORMATION
  Report Type: Spontaneous
  Country: US (occurrence: US)
  Receive Date: 20250826
  Receipt Date: 20250826
  Transmission Date: 20251021
  Serious: No
  Sender: ELI LILLY AND COMPANY
  Company Number: US-ELI_LILLY_AND_COMPANY-US202508021500

PATIENT
  Sex: Female

DRUGS (1)
  1. MOUNJARO [Suspect]
     Active Substance: TIRZEPATIDE
     Indication: Product used for unknown indication
     Route: 065

REACTIONS (13)
  - Disturbance in attention [Unknown]
  - Feeding disorder [Unknown]
  - Headache [Unknown]
  - Illness [Unknown]
  - Off label use [Unknown]
  - Palpitations [Unknown]
  - Sleep disorder [Unknown]
  - Starvation [Unknown]
  - Asthenia [Unknown]
  - Abdominal pain [Unknown]
  - Eructation [Unknown]
  - Nausea [Unknown]
  - Constipation [Unknown]
